FAERS Safety Report 18728308 (Version 1)
Quarter: 2021Q1

REPORT INFORMATION
  Report Type: Report from Study
  Country: CA (occurrence: CA)
  Receive Date: 20210112
  Receipt Date: 20210112
  Transmission Date: 20210419
  Serious: Yes (Other)
  Sender: FDA-Public Use
  Company Number: CA-JNJFOC-20210107000

PATIENT
  Sex: Male

DRUGS (1)
  1. REMICADE [Suspect]
     Active Substance: INFLIXIMAB
     Indication: COLITIS ULCERATIVE
     Route: 042

REACTIONS (6)
  - Back pain [Unknown]
  - Dizziness [Unknown]
  - Anxiety [Unknown]
  - Infusion related reaction [Unknown]
  - Blood pressure fluctuation [Recovered/Resolved]
  - Syncope [Unknown]
